FAERS Safety Report 10758597 (Version 1)
Quarter: 2015Q1

REPORT INFORMATION
  Report Type: Spontaneous
  Country: US (occurrence: US)
  Receive Date: 20150203
  Receipt Date: 20150203
  Transmission Date: 20150721
  Serious: No
  Sender: FDA-Public Use
  Company Number: US-B.I. PHARMACEUTICALS,INC./RIDGEFIELD-2015-BI-03461BP

PATIENT
  Age: 66 Year
  Sex: Male
  Weight: 68.04 kg

DRUGS (5)
  1. SPIRIVA [Suspect]
     Active Substance: TIOTROPIUM BROMIDE MONOHYDRATE
     Indication: CHRONIC OBSTRUCTIVE PULMONARY DISEASE
     Dosage: 18 MCG
     Route: 055
     Dates: start: 2009
  2. TRAZODONE [Concomitant]
     Active Substance: TRAZODONE HYDROCHLORIDE
     Indication: ANXIETY
     Dosage: 2 ANZ
     Route: 048
     Dates: start: 2009
  3. RANITIDINE [Concomitant]
     Active Substance: RANITIDINE\RANITIDINE HYDROCHLORIDE
     Indication: DYSPEPSIA
     Dosage: 1 ANZ
     Route: 048
     Dates: start: 2011
  4. ASPIRIN. [Concomitant]
     Active Substance: ASPIRIN
     Indication: EXTRASYSTOLES
     Dosage: 81 MG
     Route: 048
     Dates: start: 201405
  5. ALBUTEROL SULFATE. [Concomitant]
     Active Substance: ALBUTEROL SULFATE
     Indication: CHRONIC OBSTRUCTIVE PULMONARY DISEASE
     Dosage: NEBULIZER, FORMULATION: INHALATION AEROSOL
     Route: 055
     Dates: start: 2009

REACTIONS (8)
  - Dyspnoea [Not Recovered/Not Resolved]
  - Fear [Recovered/Resolved]
  - Abnormal loss of weight [Unknown]
  - Oropharyngeal pain [Not Recovered/Not Resolved]
  - Abnormal weight gain [Unknown]
  - Epistaxis [Unknown]
  - Dysphonia [Not Recovered/Not Resolved]
  - Nasal septum deviation [Not Recovered/Not Resolved]

NARRATIVE: CASE EVENT DATE: 2011
